FAERS Safety Report 7642250-7 (Version None)
Quarter: 2011Q3

REPORT INFORMATION
  Report Type: 
  Country: None (occurrence: None)
  Receive Date: 20110728
  Receipt Date: 20110720
  Transmission Date: 20111222
  Serious: Yes (Hospitalization)
  Sender: FDA-Public Use
  Company Number: PHHY2010US07037

PATIENT
  Sex: Female

DRUGS (1)
  1. EXJADE [Suspect]
     Indication: SICKLE CELL ANAEMIA
     Dosage: 2250 MG, QD
     Route: 048

REACTIONS (3)
  - PAIN IN EXTREMITY [None]
  - ABDOMINAL PAIN [None]
  - SICKLE CELL ANAEMIA WITH CRISIS [None]
